FAERS Safety Report 10476847 (Version 1)
Quarter: 2014Q3

REPORT INFORMATION
  Report Type: Spontaneous
  Country: US (occurrence: US)
  Receive Date: 20140926
  Receipt Date: 20140926
  Transmission Date: 20150326
  Serious: Yes (Hospitalization, Other)
  Sender: FDA-Public Use
  Company Number: US-ROCHE-1465821

PATIENT
  Age: 62 Year
  Sex: Male

DRUGS (5)
  1. GABAPENTIN. [Concomitant]
     Active Substance: GABAPENTIN
  2. AVASTIN [Suspect]
     Active Substance: BEVACIZUMAB
     Indication: GLIOBLASTOMA
     Dosage: 100MGS PER 4ML
     Route: 065
     Dates: start: 20131022
  3. LAMICTAL [Concomitant]
     Active Substance: LAMOTRIGINE
  4. TEMODAR [Concomitant]
     Active Substance: TEMOZOLOMIDE
  5. AVASTIN [Suspect]
     Active Substance: BEVACIZUMAB
     Dosage: 400MGS PER 16ML
     Route: 065
     Dates: start: 20131105

REACTIONS (7)
  - Thrombotic microangiopathy [Unknown]
  - Platelet count decreased [Unknown]
  - Blood creatinine increased [Unknown]
  - Blood lactate dehydrogenase increased [Unknown]
  - Drug hypersensitivity [Unknown]
  - Hypertension [Unknown]
  - Haemolytic uraemic syndrome [Unknown]

NARRATIVE: CASE EVENT DATE: 201311
